FAERS Safety Report 25864824 (Version 1)
Quarter: 2025Q3

REPORT INFORMATION
  Report Type: Report from Study
  Country: US (occurrence: US)
  Receive Date: 20250930
  Receipt Date: 20250930
  Transmission Date: 20251021
  Serious: Yes (Hospitalization)
  Sender: NOVO NORDISK
  Company Number: US-NOVOPROD-1528944

PATIENT
  Age: 63 Year
  Sex: Female

DRUGS (3)
  1. TRESIBA [Suspect]
     Active Substance: INSULIN DEGLUDEC
     Indication: Type 2 diabetes mellitus
     Route: 058
     Dates: start: 20250601
  2. NOVOLOG [Suspect]
     Active Substance: INSULIN ASPART
     Indication: Type 2 diabetes mellitus
     Route: 058
     Dates: start: 20250601
  3. OZEMPIC [Suspect]
     Active Substance: SEMAGLUTIDE
     Indication: Type 2 diabetes mellitus
     Route: 058
     Dates: start: 20250601

REACTIONS (6)
  - Headache [Unknown]
  - Drug hypersensitivity [Recovered/Resolved]
  - Cerebrovascular accident [Unknown]
  - Blindness unilateral [Not Recovered/Not Resolved]
  - Urinary tract infection [Recovered/Resolved]
  - Carotid artery occlusion [Unknown]

NARRATIVE: CASE EVENT DATE: 20250820
